FAERS Safety Report 18791700 (Version 1)
Quarter: 2021Q1

REPORT INFORMATION
  Report Type: Spontaneous
  Country: CA (occurrence: CA)
  Receive Date: 20210126
  Receipt Date: 20210126
  Transmission Date: 20210419
  Serious: Yes (Other)
  Sender: FDA-Public Use
  Company Number: CA-JNJFOC-20210135298

PATIENT
  Age: 24 Year
  Sex: Female
  Weight: 58 kg

DRUGS (3)
  1. INFLIXIMAB, RECOMBINANT [Suspect]
     Active Substance: INFLIXIMAB
     Indication: CROHN^S DISEASE
     Route: 042
  2. ETHINYLESTRADIOL/LEVONORGESTREL [Concomitant]
     Active Substance: ETHINYL ESTRADIOL\LEVONORGESTREL
  3. NORTRIPTYLINE [Concomitant]
     Active Substance: NORTRIPTYLINE

REACTIONS (9)
  - Nausea [Recovered/Resolved]
  - Mental disorder [Recovered/Resolved]
  - Malaise [Recovered/Resolved]
  - Intentional product use issue [Recovered/Resolved]
  - Dehydration [Recovered/Resolved]
  - Abnormal dreams [Recovered/Resolved]
  - Off label use [Recovered/Resolved]
  - Infected cyst [Recovered/Resolved]
  - Paraesthesia [Recovered/Resolved]
